FAERS Safety Report 5727841-2 (Version None)
Quarter: 2008Q2

REPORT INFORMATION
  Report Type: 
  Country: None (occurrence: None)
  Receive Date: 20080505
  Receipt Date: 20080423
  Transmission Date: 20081010
  Serious: Yes (Life-Threatening, Other)
  Sender: FDA-Public Use
  Company Number: JP-PFIZER INC-2008036111

PATIENT
  Sex: Male

DRUGS (1)
  1. VIAGRA [Suspect]
     Indication: ERECTILE DYSFUNCTION
     Dosage: TEXT:100 MG PRN PRN TDD:100 MG
     Dates: start: 20080401, end: 20080401

REACTIONS (6)
  - DIZZINESS [None]
  - FLUSHING [None]
  - HEPATIC FUNCTION ABNORMAL [None]
  - HYPERTENSION [None]
  - MALAISE [None]
  - MYALGIA [None]
